FAERS Safety Report 22644984 (Version 1)
Quarter: 2023Q2

REPORT INFORMATION
  Report Type: Spontaneous
  Country: US (occurrence: None)
  Receive Date: 20230625
  Receipt Date: 20230625
  Transmission Date: 20230721
  Serious: Yes (Hospitalization)
  Sender: FDA-Public Use
  Company Number: None

PATIENT
  Age: 47 Year
  Sex: Female
  Weight: 85.5 kg

DRUGS (14)
  1. MOUNJARO [Suspect]
     Active Substance: TIRZEPATIDE
     Indication: Type 2 diabetes mellitus
     Dosage: OTHER QUANTITY : 4 INJECTION(S);?FREQUENCY : WEEKLY;?OTHER ROUTE : INJECTED IN FAT IN STOMACH;?
     Route: 050
     Dates: start: 20230605, end: 20230619
  2. ALPRAZOLAM [Concomitant]
     Active Substance: ALPRAZOLAM
  3. ONDANSETRON [Concomitant]
     Active Substance: ONDANSETRON
  4. INSULIN GLARGINE [Concomitant]
     Active Substance: INSULIN GLARGINE
  5. SERTRALINE [Concomitant]
     Active Substance: SERTRALINE HYDROCHLORIDE
  6. OXYBUTYNIN [Concomitant]
     Active Substance: OXYBUTYNIN
  7. Blood Gluc Sensor [Concomitant]
  8. GABAPENTIN [Concomitant]
     Active Substance: GABAPENTIN
  9. ROSUVASTATIN [Concomitant]
     Active Substance: ROSUVASTATIN
  10. EMPAGLIFLOZIN [Concomitant]
     Active Substance: EMPAGLIFLOZIN
  11. OMEPRAZOLE [Concomitant]
     Active Substance: OMEPRAZOLE
  12. POLYETHYLENE GLYCOL [Concomitant]
  13. VITAMIN D3 [Concomitant]
     Active Substance: CHOLECALCIFEROL
  14. VITAMIN B12 [Concomitant]
     Active Substance: CYANOCOBALAMIN

REACTIONS (18)
  - Nephrolithiasis [None]
  - Vomiting [None]
  - Eructation [None]
  - Dyspepsia [None]
  - Hyperhidrosis [None]
  - Chills [None]
  - Heart rate increased [None]
  - Abdominal distension [None]
  - Abdominal discomfort [None]
  - Panic attack [None]
  - Flatulence [None]
  - Diarrhoea [None]
  - Blood glucose decreased [None]
  - Drug intolerance [None]
  - Dehydration [None]
  - White blood cell count increased [None]
  - Weight decreased [None]
  - Anxiety [None]

NARRATIVE: CASE EVENT DATE: 20230619
